FAERS Safety Report 25389955 (Version 1)
Quarter: 2025Q2

REPORT INFORMATION
  Report Type: Spontaneous
  Country: FR (occurrence: FR)
  Receive Date: 20250603
  Receipt Date: 20250603
  Transmission Date: 20250717
  Serious: Yes (Other)
  Sender: BAYER HEALTHCARE PHARMACEUTICALS INC.
  Company Number: None

PATIENT
  Age: 52 Year
  Sex: Female
  Weight: 50 kg

DRUGS (1)
  1. GADOBUTROL [Suspect]
     Active Substance: GADOBUTROL
     Indication: Magnetic resonance imaging
     Route: 042
     Dates: start: 20250513, end: 20250513

REACTIONS (4)
  - Dry throat [Recovered/Resolved]
  - Throat irritation [Recovered/Resolved]
  - Pharyngeal erythema [Recovered/Resolved]
  - Throat irritation [Recovered/Resolved]

NARRATIVE: CASE EVENT DATE: 20250513
